FAERS Safety Report 25809686 (Version 1)
Quarter: 2025Q3

REPORT INFORMATION
  Report Type: Spontaneous
  Country: US (occurrence: US)
  Receive Date: 20250916
  Receipt Date: 20250916
  Transmission Date: 20251020
  Serious: Yes (Other)
  Sender: JOHNSON AND JOHNSON
  Company Number: US-JNJFOC-20250911323

PATIENT
  Age: 19 Year
  Sex: Female

DRUGS (4)
  1. SPORANOX [Suspect]
     Active Substance: ITRACONAZOLE
     Indication: Chronic sinusitis
     Route: 065
     Dates: start: 202402
  2. AMOXICILLIN [Suspect]
     Active Substance: AMOXICILLIN
     Indication: Chronic sinusitis
     Route: 048
     Dates: start: 202402
  3. CLINDAMYCIN HYDROCHLORIDE [Suspect]
     Active Substance: CLINDAMYCIN HYDROCHLORIDE
     Indication: Chronic sinusitis
     Route: 065
     Dates: start: 202402
  4. TOBRAMYCIN [Suspect]
     Active Substance: TOBRAMYCIN
     Indication: Chronic sinusitis
     Route: 065
     Dates: start: 202402

REACTIONS (4)
  - Pneumonia [Unknown]
  - Sinusitis [Recovering/Resolving]
  - Musculoskeletal pain [Unknown]
  - Off label use [Unknown]

NARRATIVE: CASE EVENT DATE: 20240101
